FAERS Safety Report 16677012 (Version 1)
Quarter: 2019Q3

REPORT INFORMATION
  Report Type: Spontaneous
  Country: US (occurrence: US)
  Receive Date: 20190807
  Receipt Date: 20190807
  Transmission Date: 20191004
  Serious: Yes (Death, Hospitalization, Other)
  Sender: FDA-Public Use
  Company Number: US-CURIUM-200900411

PATIENT
  Age: 64 Year
  Sex: Female

DRUGS (3)
  1. ULTRA-TECHNEKOW DTE [Suspect]
     Active Substance: TECHNETIUM TC-99M SODIUM PERTECHNETATE
     Indication: SCAN LYMPH NODES
     Route: 058
     Dates: start: 20090720, end: 20090720
  2. ANTIEPILEPTICS [Concomitant]
     Active Substance: UNSPECIFIED INGREDIENT
     Indication: SEIZURE
     Dosage: UNKNOWN
     Route: 065
  3. TECHNETIUM TC 99M SULFUR COLLOID [Concomitant]
     Active Substance: TECHNETIUM TC-99M SULFUR COLLOID
     Indication: SCAN LYMPH NODES
     Dosage: UNK MCI, SINGLE
     Route: 058
     Dates: start: 20090720, end: 20090720

REACTIONS (5)
  - Nausea [Unknown]
  - Nosocomial infection [Fatal]
  - Vomiting [Unknown]
  - Seizure [Unknown]
  - Sepsis [Fatal]

NARRATIVE: CASE EVENT DATE: 20090721
